FAERS Safety Report 12758790 (Version 1)
Quarter: 2016Q3

REPORT INFORMATION
  Report Type: Spontaneous
  Country: US (occurrence: US)
  Receive Date: 20160918
  Receipt Date: 20160918
  Transmission Date: 20161109
  Serious: Yes (Other)
  Sender: FDA-Public Use
  Company Number: None

PATIENT
  Age: 33 Year
  Sex: Female
  Weight: 85.5 kg

DRUGS (2)
  1. CYMBALTA [Concomitant]
     Active Substance: DULOXETINE HYDROCHLORIDE
  2. OXY RAPID SPOT TREATMENT MAXIMUM ACTION [Suspect]
     Active Substance: BENZOYL PEROXIDE
     Indication: ACNE
     Dosage: OTHER STRENGTH:;OTHER DOSE:DAB;OTHER FREQUENCY:;OTHER ROUTE:
     Route: 061
     Dates: start: 20160915, end: 20160916

REACTIONS (1)
  - Chemical burn of skin [None]

NARRATIVE: CASE EVENT DATE: 20160916
